FAERS Safety Report 25654299 (Version 1)
Quarter: 2025Q3

REPORT INFORMATION
  Report Type: Spontaneous
  Country: US (occurrence: US)
  Receive Date: 20250807
  Receipt Date: 20250807
  Transmission Date: 20251020
  Serious: Yes (Hospitalization)
  Sender: CADILA
  Company Number: US-CPL-005606

PATIENT
  Age: 67 Year
  Sex: Male

DRUGS (4)
  1. ROSUVASTATIN [Interacting]
     Active Substance: ROSUVASTATIN
     Indication: Peripheral arterial occlusive disease
     Dates: start: 2025, end: 202507
  2. FENOFIBRATE [Interacting]
     Active Substance: FENOFIBRATE
     Indication: Hypertriglyceridaemia
     Dates: start: 2025
  3. ASPIRIN [Concomitant]
     Active Substance: ASPIRIN
  4. ROSUVASTATIN [Interacting]
     Active Substance: ROSUVASTATIN
     Indication: Coronary artery disease
     Dates: start: 2025, end: 202507

REACTIONS (3)
  - Myositis [Recovering/Resolving]
  - Rhabdomyolysis [Recovering/Resolving]
  - Drug interaction [Unknown]

NARRATIVE: CASE EVENT DATE: 20250701
